FAERS Safety Report 7767873-6 (Version None)
Quarter: 2011Q3

REPORT INFORMATION
  Report Type: 
  Country: None (occurrence: None)
  Receive Date: 20110922
  Receipt Date: 20100920
  Transmission Date: 20111222
  Serious: No
  Sender: FDA-Public Use
  Company Number: US-ASTRAZENECA-2010SE08891

PATIENT
  Sex: Male
  Weight: 79.4 kg

DRUGS (1)
  1. SEROQUEL [Suspect]
     Indication: SCHIZOPHRENIA
     Route: 048
     Dates: start: 20050101, end: 20100901

REACTIONS (5)
  - INSOMNIA [None]
  - NAUSEA [None]
  - HALLUCINATION, VISUAL [None]
  - VOMITING [None]
  - DRUG DOSE OMISSION [None]
